FAERS Safety Report 14679975 (Version 1)
Quarter: 2018Q1

REPORT INFORMATION
  Report Type: Spontaneous
  Country: US (occurrence: US)
  Receive Date: 20180324
  Receipt Date: 20180324
  Transmission Date: 20180509
  Serious: Yes (Death)
  Sender: FDA-Public Use
  Company Number: None

PATIENT
  Age: 17 Year
  Sex: Male

DRUGS (1)
  1. REVLIMID [Suspect]
     Active Substance: LENALIDOMIDE
     Indication: ACUTE MYELOID LEUKAEMIA
     Route: 048
     Dates: start: 20150703, end: 20150825

REACTIONS (4)
  - Anaemia [None]
  - Febrile neutropenia [None]
  - Sepsis [None]
  - Pleural effusion [None]

NARRATIVE: CASE EVENT DATE: 20150825
